FAERS Safety Report 10336166 (Version 1)
Quarter: 2014Q3

REPORT INFORMATION
  Report Type: Spontaneous
  Country: US (occurrence: US)
  Receive Date: 20140723
  Receipt Date: 20140723
  Transmission Date: 20150326
  Serious: No
  Sender: FDA-Public Use
  Company Number: US-BRISTOL-MYERS SQUIBB COMPANY-19864958

PATIENT
  Age: 85 Year
  Sex: Female

DRUGS (13)
  1. IMDUR [Concomitant]
     Active Substance: ISOSORBIDE MONONITRATE
  2. XIFAXAN [Concomitant]
     Active Substance: RIFAXIMIN
  3. FOLIC ACID. [Concomitant]
     Active Substance: FOLIC ACID
  4. COUMADIN [Suspect]
     Active Substance: WARFARIN SODIUM
     Dosage: 1DF:VARYING DOSE (2.5,5,7.5)UNIT NOS
  5. NEURONTIN [Concomitant]
     Active Substance: GABAPENTIN
  6. CLARITHROMYCIN. [Concomitant]
     Active Substance: CLARITHROMYCIN
  7. NITROGLYCERIN. [Concomitant]
     Active Substance: NITROGLYCERIN
  8. ZAROXOLYN [Concomitant]
     Active Substance: METOLAZONE
  9. LASIX [Concomitant]
     Active Substance: FUROSEMIDE
  10. LEVOTHYROXINE [Concomitant]
     Active Substance: LEVOTHYROXINE
  11. METOPROLOL [Concomitant]
     Active Substance: METOPROLOL
  12. POTASSIUM [Concomitant]
     Active Substance: POTASSIUM
  13. LACTULOSE. [Concomitant]
     Active Substance: LACTULOSE

REACTIONS (1)
  - Fluid retention [Unknown]
